FAERS Safety Report 7800876-1 (Version None)
Quarter: 2011Q4

REPORT INFORMATION
  Report Type: 
  Country: None (occurrence: None)
  Receive Date: 20111006
  Receipt Date: 20110929
  Transmission Date: 20120403
  Serious: Yes (Other)
  Sender: FDA-Public Use
  Company Number: HR-MERCK-1109USA03391

PATIENT
  Age: 74 Year
  Sex: Male

DRUGS (14)
  1. DIAZEPAM [Concomitant]
     Route: 065
  2. PROSCAR [Suspect]
     Indication: BENIGN PROSTATIC HYPERPLASIA
     Route: 048
     Dates: start: 20090901
  3. PROSCAR [Suspect]
     Dosage: STARTED TO USE REGULARLY AS PRESCRIBED
     Route: 048
     Dates: start: 20100201
  4. BISOPROLOL FUMARATE [Concomitant]
     Route: 065
  5. PEPTORAN [Concomitant]
     Route: 065
  6. TONOCARDIN [Concomitant]
     Route: 065
     Dates: start: 20100501
  7. TRAMADOL HCL [Concomitant]
     Route: 065
  8. IBRUPROFEN [Concomitant]
     Route: 065
  9. PROSCAR [Suspect]
     Dosage: NOT USING REGULARLY AS PRESCRIBED
     Route: 048
     Dates: start: 20100101
  10. ORMIDOL [Concomitant]
     Route: 065
  11. LUMIDOL [Concomitant]
     Indication: PAIN
     Route: 065
  12. DOKSICIKLIN [Concomitant]
     Route: 065
     Dates: start: 20100401
  13. DIAZEPAM [Concomitant]
     Route: 065
  14. NEXIUM [Concomitant]
     Route: 048

REACTIONS (9)
  - HEADACHE [None]
  - URINARY TRACT INFECTION [None]
  - HAEMATURIA [None]
  - CHEST PAIN [None]
  - FEELING ABNORMAL [None]
  - COUGH [None]
  - EPISTAXIS [None]
  - BLINDNESS [None]
  - DYSPHAGIA [None]
